FAERS Safety Report 9866838 (Version 1)
Quarter: 2014Q1

REPORT INFORMATION
  Report Type: Spontaneous
  Country: US (occurrence: None)
  Receive Date: 20140131
  Receipt Date: 20140131
  Transmission Date: 20141002
  Serious: Yes (Death)
  Sender: FDA-Public Use
  Company Number: 2014AP000451

PATIENT
  Age: 35 Year
  Sex: Male

DRUGS (8)
  1. PAROXETINE HCL TABLETS [Suspect]
     Dosage: ; PO
     Route: 048
  2. GABAPENTIN [Suspect]
     Dosage: ; PO
     Route: 048
  3. TRAMADOL HYDROCHLORIDE TABLETS [Suspect]
     Dosage: ; PO
     Route: 048
  4. OMEPRAZOLE [Suspect]
     Dosage: ; PO
  5. MORPHINE [Suspect]
     Dosage: ; PO
     Route: 048
  6. ALPRAZOLAM [Suspect]
     Dosage: ; PO
     Route: 048
  7. HYDROXYZINE [Suspect]
     Dosage: ; PO
     Route: 048
  8. LORAZEPAM [Suspect]
     Dosage: ; PO
     Route: 048

REACTIONS (1)
  - Cardio-respiratory arrest [None]
